FAERS Safety Report 9633772 (Version 2)
Quarter: 2014Q2

REPORT INFORMATION
  Report Type: Spontaneous
  Country: FR (occurrence: FR)
  Receive Date: 20131021
  Receipt Date: 20140506
  Transmission Date: 20141212
  Serious: Yes (Other)
  Sender: FDA-Public Use
  Company Number: FR-JNJFOC-20131010895

PATIENT
  Age: 43 Year
  Sex: Female
  Weight: 72 kg

DRUGS (5)
  1. SIMPONI [Suspect]
     Indication: SPONDYLITIS
     Route: 058
     Dates: start: 201305, end: 201308
  2. CELEBREX [Concomitant]
     Indication: SPONDYLITIS
     Dosage: 200 TO 400 MG PER OS
     Route: 048
     Dates: start: 201209
  3. IXPRIM [Concomitant]
     Route: 048
     Dates: start: 201402
  4. INEXIUM [Concomitant]
     Route: 048
     Dates: start: 2010
  5. XYZAL [Concomitant]
     Dosage: 1 TABLET PER OS, FOR MORE THAN ONE YEAR FOR ALLERGY
     Route: 048
     Dates: start: 2010

REACTIONS (1)
  - Drug-induced liver injury [Recovered/Resolved]
